FAERS Safety Report 15258147 (Version 3)
Quarter: 2018Q4

REPORT INFORMATION
  Report Type: Report from Study
  Country: US (occurrence: US)
  Receive Date: 20180809
  Receipt Date: 20181107
  Transmission Date: 20190204
  Serious: No
  Sender: FDA-Public Use
  Company Number: US-ALEXION PHARMACEUTICALS INC.-A201809689

PATIENT
  Sex: Female

DRUGS (1)
  1. SOLIRIS [Suspect]
     Active Substance: ECULIZUMAB
     Indication: PRODUCT USED FOR UNKNOWN INDICATION
     Dosage: UNK
     Route: 065

REACTIONS (5)
  - Poor venous access [Unknown]
  - Fatigue [Unknown]
  - Somnolence [Unknown]
  - Eczema [Unknown]
  - Skin lesion [Unknown]

NARRATIVE: CASE EVENT DATE: 20180927
